FAERS Safety Report 18759514 (Version 3)
Quarter: 2021Q2

REPORT INFORMATION
  Report Type: Spontaneous
  Country: US (occurrence: US)
  Receive Date: 20210120
  Receipt Date: 20210407
  Transmission Date: 20210717
  Serious: Yes (Hospitalization)
  Sender: FDA-Public Use
  Company Number: US-GLOBAL BLOOD THERAPEUTICS INC-US-GBT-20-04233

PATIENT
  Age: 15 Year
  Sex: Male

DRUGS (4)
  1. HYDROXYUREA. [Concomitant]
     Active Substance: HYDROXYUREA
     Indication: PRODUCT USED FOR UNKNOWN INDICATION
     Route: 048
     Dates: start: 2012, end: 2020
  2. HYDROXYUREA. [Concomitant]
     Active Substance: HYDROXYUREA
     Route: 048
     Dates: start: 202009, end: 202012
  3. OXBRYTA [Suspect]
     Active Substance: VOXELOTOR
     Indication: SICKLE CELL DISEASE
     Route: 048
     Dates: start: 20200721, end: 20201212
  4. HYDROXYUREA. [Concomitant]
     Active Substance: HYDROXYUREA
     Route: 048
     Dates: start: 202009, end: 202012

REACTIONS (3)
  - Acute chest syndrome [Recovered/Resolved]
  - Therapy cessation [Unknown]
  - Sickle cell anaemia with crisis [Recovered/Resolved]

NARRATIVE: CASE EVENT DATE: 20201207
